FAERS Safety Report 9147485 (Version 2)
Quarter: 2013Q2

REPORT INFORMATION
  Report Type: Spontaneous
  Country: IT (occurrence: IT)
  Receive Date: 20130307
  Receipt Date: 20130502
  Transmission Date: 20140414
  Serious: Yes (Other)
  Sender: FDA-Public Use
  Company Number: IT-PFIZER INC-2013079183

PATIENT
  Age: 84 Year
  Sex: Male

DRUGS (5)
  1. LYRICA [Suspect]
     Dosage: 75 MG, 1X/DAY
     Dates: start: 20120506, end: 20120512
  2. CYMBALTA [Suspect]
     Dosage: 60 MG, 1X/DAY
     Dates: start: 20120506, end: 20120512
  3. LASIX [Concomitant]
  4. COUMADIN [Concomitant]
  5. TACHIDOL [Concomitant]

REACTIONS (2)
  - Generalised oedema [Recovering/Resolving]
  - Abdominal distension [Recovering/Resolving]
